FAERS Safety Report 4420321-6 (Version None)
Quarter: 2004Q3

REPORT INFORMATION
  Report Type: 
  Country: None (occurrence: None)
  Receive Date: 20040804
  Receipt Date: 20040720
  Transmission Date: 20050211
  Serious: Yes (Life-Threatening, Hospitalization)
  Sender: FDA-Public Use
  Company Number: 2002CG01712

PATIENT
  Age: 65 Year
  Sex: Male

DRUGS (4)
  1. ZESTORETIC [Suspect]
     Indication: HYPERTENSION
     Dosage: 2 DF DAILY PO
     Route: 048
     Dates: end: 20020930
  2. ROCEPHIN [Suspect]
     Dates: start: 20020912, end: 20020912
  3. CELECTOL [Concomitant]
  4. CELESTENE [Suspect]
     Dates: end: 20020930

REACTIONS (8)
  - ANGIONEUROTIC OEDEMA [None]
  - APATHY [None]
  - APRAXIA [None]
  - ASTHENIA [None]
  - DRUG HYPERSENSITIVITY [None]
  - GENERAL PHYSICAL HEALTH DETERIORATION [None]
  - HYPONATRAEMIA [None]
  - RESPIRATORY DISORDER [None]
